FAERS Safety Report 4575869-0 (Version None)
Quarter: 2005Q1

REPORT INFORMATION
  Report Type: 
  Country: None (occurrence: None)
  Receive Date: 20050204
  Receipt Date: 20050124
  Transmission Date: 20050727
  Serious: Yes (Other)
  Sender: FDA-Public Use
  Company Number: 2005019278

PATIENT
  Sex: Female

DRUGS (2)
  1. RELPAX [Suspect]
     Indication: MIGRAINE
  2. KETOPROFEN [Concomitant]

REACTIONS (3)
  - DRUG ABUSER [None]
  - HEADACHE [None]
  - MIGRAINE [None]
